FAERS Safety Report 11539861 (Version 1)
Quarter: 2015Q3

REPORT INFORMATION
  Report Type: Spontaneous
  Country: US (occurrence: None)
  Receive Date: 20150922
  Receipt Date: 20150922
  Transmission Date: 20151125
  Serious: No
  Sender: FDA-Public Use
  Company Number: None

PATIENT
  Age: 59 Year
  Sex: Female
  Weight: 79.38 kg

DRUGS (11)
  1. OMEPRAZOLE. [Concomitant]
     Active Substance: OMEPRAZOLE
  2. AMBUTEROL [Concomitant]
  3. FISH OIL [Concomitant]
     Active Substance: FISH OIL
  4. BLOOD PRESSURE MACHINE [Concomitant]
  5. LOSATRIN [Concomitant]
  6. D3 [Concomitant]
     Active Substance: 25-HYDROXYCHOLECALCIFEROL, 5-TRANS-
  7. PRANDIN [Concomitant]
     Active Substance: REPAGLINIDE
  8. SULFAMETHOXAZOLE [Suspect]
     Active Substance: SULFAMETHOXAZOLE
     Indication: PHARYNGITIS STREPTOCOCCAL
     Route: 048
     Dates: start: 20150601, end: 20150602
  9. NORVASC [Concomitant]
     Active Substance: AMLODIPINE BESYLATE
  10. SULFAMETHOXAZOLE [Suspect]
     Active Substance: SULFAMETHOXAZOLE
     Indication: BITE
     Route: 048
     Dates: start: 20150601, end: 20150602
  11. SUGAR TESTERS - ONE TOUCH [Concomitant]

REACTIONS (2)
  - Malaise [None]
  - Drug interaction [None]

NARRATIVE: CASE EVENT DATE: 201408
